FAERS Safety Report 15397237 (Version 1)
Quarter: 2018Q3

REPORT INFORMATION
  Report Type: Report from Study
  Country: CN (occurrence: CN)
  Receive Date: 20180918
  Receipt Date: 20180918
  Transmission Date: 20181010
  Serious: Yes (Death)
  Sender: FDA-Public Use
  Company Number: CN-ROCHE-2186153

PATIENT
  Age: 75 Year
  Sex: Male
  Weight: 87 kg

DRUGS (7)
  1. RABEPRAZOLE SODIUM. [Concomitant]
     Active Substance: RABEPRAZOLE SODIUM
     Dosage: AS ACID?INHIBITORY
     Route: 065
     Dates: start: 20180716
  2. PEMETREXED. [Suspect]
     Active Substance: PEMETREXED
     Indication: NON-SMALL CELL LUNG CANCER STAGE IV
     Dosage: FIRST DOSE ON 18/APR/2018 AT 995 MG?SECOND DOSE ON 08/MAY/2018 AT 990 MG?THIRD DOSE ON 31/MAY/2018 A
     Route: 042
     Dates: start: 20180418
  3. PLENDIL [Concomitant]
     Active Substance: FELODIPINE
  4. ATEZOLIZUMAB. [Suspect]
     Active Substance: ATEZOLIZUMAB
     Indication: NON-SMALL CELL LUNG CANCER STAGE IV
     Dosage: SECOND DOSE ON 08/MAY/2018 AT 1200 MG?THIRD DOSE ON 31/MAY/2018 AT 1200 MG?MOST RECENT DOSE OF ATEZO
     Route: 042
     Dates: start: 20180418
  5. YIXUESHENG CAPSULE [Concomitant]
     Dosage: YIXUESHENG CAPSULE:GLUE, TORTOISE SHELL GLU FOR INVIGORATING THE SPLEEN, ENRICHING THE KIDNEY AND EN
     Route: 065
     Dates: start: 20180522
  6. CISPLATIN. [Suspect]
     Active Substance: CISPLATIN
     Indication: NON-SMALL CELL LUNG CANCER STAGE IV
     Dosage: FIRST DOSE ON 18/APR/2018 AT 140 MG?SECOND DOSE ON 08/MAY/2018 AT 140 MG?THIRD DOSE ON 31/MAY/2018
     Route: 042
     Dates: start: 20180418, end: 20180622
  7. LEUCOGEN (CHINA) [Concomitant]
     Dosage: BLOOD RISE
     Route: 065
     Dates: start: 20180716

REACTIONS (1)
  - Respiratory failure [Fatal]

NARRATIVE: CASE EVENT DATE: 20180911
